FAERS Safety Report 9187842 (Version 2)
Quarter: 2013Q1

REPORT INFORMATION
  Report Type: Spontaneous
  Country: US (occurrence: US)
  Receive Date: 20130325
  Receipt Date: 20130325
  Transmission Date: 20140127
  Serious: No
  Sender: FDA-Public Use
  Company Number: US-MYLANLABS-2012S1012147

PATIENT
  Age: 55 Year
  Sex: Male

DRUGS (4)
  1. FENTANYL TRANSDERMAL SYSTEM [Suspect]
     Indication: ARTHRALGIA
     Dosage: CHANGED Q48H
     Route: 062
  2. FENTANYL TRANSDERMAL SYSTEM [Suspect]
     Indication: BACK PAIN
     Dosage: CHANGED Q48H
     Route: 062
  3. FENTANYL TRANSDERMAL SYSTEM [Suspect]
     Indication: ARTHRALGIA
     Dosage: CHANGED Q48H
     Route: 062
  4. FENTANYL TRANSDERMAL SYSTEM [Suspect]
     Indication: PAIN IN EXTREMITY
     Dosage: CHANGED Q48H
     Route: 062

REACTIONS (8)
  - Drug ineffective [Not Recovered/Not Resolved]
  - Arthralgia [Not Recovered/Not Resolved]
  - Pain in extremity [Not Recovered/Not Resolved]
  - Arthralgia [Not Recovered/Not Resolved]
  - Back pain [Not Recovered/Not Resolved]
  - Drug withdrawal syndrome [Not Recovered/Not Resolved]
  - Incorrect drug administration duration [Not Recovered/Not Resolved]
  - Product adhesion issue [None]
